FAERS Safety Report 5000502-3 (Version None)
Quarter: 2006Q2

REPORT INFORMATION
  Report Type: 
  Country: None (occurrence: None)
  Receive Date: 20060501
  Receipt Date: 20060417
  Transmission Date: 20061013
  Serious: Yes (Other)
  Sender: FDA-Public Use
  Company Number: 2006052762

PATIENT
  Age: 7 Year
  Sex: Male
  Weight: 20.4119 kg

DRUGS (2)
  1. GENOTROPIN [Suspect]
     Indication: GROWTH HORMONE DEFICIENCY
     Dosage: 0.7 MG (0.7 MG, DAILY), SUBCUTANEOUS
     Route: 058
     Dates: start: 20040429, end: 20060407
  2. DITROPAN [Concomitant]

REACTIONS (8)
  - ANOREXIA [None]
  - CEREBRAL VENTRICLE DILATATION [None]
  - CONVULSION [None]
  - DRUG DOSE OMISSION [None]
  - HYPOGLYCAEMIA [None]
  - INTRACRANIAL PRESSURE INCREASED [None]
  - MIGRAINE [None]
  - WEIGHT DECREASED [None]
